FAERS Safety Report 8937073 (Version 1)
Quarter: 2012Q4

REPORT INFORMATION
  Report Type: 
  Country: CN (occurrence: CN)
  Receive Date: 20121129
  Receipt Date: 20121129
  Transmission Date: 20130627
  Serious: Yes (Death, Hospitalization, Other)
  Sender: FDA-Public Use
  Company Number: PHHY2012CN107781

PATIENT
  Age: 80 Year
  Sex: Male

DRUGS (1)
  1. SANDIMMUN NEORAL [Suspect]
     Indication: IMMUNOSUPPRESSION
     Dosage: 125 mg, UNK
     Route: 048
     Dates: start: 20020120, end: 20081122

REACTIONS (4)
  - Disseminated intravascular coagulation [Fatal]
  - Haematuria [Recovering/Resolving]
  - Haematochezia [Recovering/Resolving]
  - Sarcoma [Recovering/Resolving]
